FAERS Safety Report 16913200 (Version 1)
Quarter: 2019Q4

REPORT INFORMATION
  Report Type: Spontaneous
  Country: US (occurrence: US)
  Receive Date: 20191014
  Receipt Date: 20191014
  Transmission Date: 20200122
  Serious: No
  Sender: FDA-Public Use
  Company Number: US-C B FLEET CO INC-201901-US-000197

PATIENT
  Age: 72 Year
  Sex: Female

DRUGS (1)
  1. MONISTAT 7 7-DAY DISPOSABLE APPLICATORS [Suspect]
     Active Substance: MICONAZOLE NITRATE
     Indication: FUNGAL INFECTION
     Dosage: DOSAGE UNKNOWN
     Route: 067
     Dates: start: 20190115

REACTIONS (5)
  - Vaginal mucosal blistering [Recovering/Resolving]
  - Vulvovaginal pain [Recovering/Resolving]
  - Vulvovaginal pruritus [Recovering/Resolving]
  - Vaginal haemorrhage [Recovering/Resolving]
  - Vulvovaginal burning sensation [Recovering/Resolving]

NARRATIVE: CASE EVENT DATE: 20190115
